FAERS Safety Report 21626350 (Version 2)
Quarter: 2022Q4

REPORT INFORMATION
  Report Type: Report from Study
  Country: BR (occurrence: BR)
  Receive Date: 20221122
  Receipt Date: 20221130
  Transmission Date: 20230113
  Serious: Yes (Hospitalization, Disabling)
  Sender: FDA-Public Use
  Company Number: BR-JNJFOC-20221056355

PATIENT
  Age: 25 Year
  Sex: Female
  Weight: 54 kg

DRUGS (4)
  1. INFLIXIMAB [Suspect]
     Active Substance: INFLIXIMAB
     Indication: Colitis ulcerative
     Dosage: LAST APPLICATION 17-OCT-2022
     Route: 041
     Dates: start: 20220927
  2. INFLIXIMAB [Suspect]
     Active Substance: INFLIXIMAB
     Indication: Colitis
     Dosage: AT WEEK 0 AND WEEK 2.
     Route: 041
  3. REMICADE [Suspect]
     Active Substance: INFLIXIMAB
     Indication: Colitis ulcerative
     Dosage: 5 MG/ML
     Route: 041
     Dates: start: 20220927
  4. REMICADE [Suspect]
     Active Substance: INFLIXIMAB
     Dosage: 100 MG SECOND DOSE AFTER 2 WEEKS
     Route: 041
     Dates: start: 20220927

REACTIONS (4)
  - Disability [Unknown]
  - Colitis ulcerative [Unknown]
  - Colitis [Unknown]
  - Drug ineffective [Unknown]

NARRATIVE: CASE EVENT DATE: 20221028
